FAERS Safety Report 7075300-X (Version None)
Quarter: 2010Q4

REPORT INFORMATION
  Report Type: 
  Country: None (occurrence: None)
  Receive Date: 20101030
  Receipt Date: 20100804
  Transmission Date: 20110411
  Serious: Yes (Other)
  Sender: FDA-Public Use
  Company Number: US-WYE-H16760410

PATIENT

DRUGS (1)
  1. TYGACIL [Suspect]
     Dosage: UNKNOWN
     Dates: start: 20100701, end: 20100801

REACTIONS (1)
  - CHOLESTASIS [None]
